FAERS Safety Report 19969173 (Version 1)
Quarter: 2021Q4

REPORT INFORMATION
  Report Type: Spontaneous
  Country: US (occurrence: US)
  Receive Date: 20211019
  Receipt Date: 20211019
  Transmission Date: 20220303
  Serious: No
  Sender: FDA-Public Use
  Company Number: US-BIO PRODUCTS LABORATORY LTD-2120724

PATIENT
  Age: 21 Year
  Sex: Male

DRUGS (2)
  1. GAMMAPLEX [Suspect]
     Active Substance: HUMAN IMMUNOGLOBULIN G
     Indication: Polyneuropathy
     Route: 042
  2. DIPHENHYDRAMINE [Concomitant]
     Active Substance: DIPHENHYDRAMINE
     Route: 048

REACTIONS (3)
  - Rash [Recovered/Resolved]
  - Lip swelling [Recovered/Resolved]
  - Eye swelling [Recovered/Resolved]
